FAERS Safety Report 5822780-0 (Version None)
Quarter: 2008Q3

REPORT INFORMATION
  Report Type: 
  Country: None (occurrence: None)
  Receive Date: 20080725
  Receipt Date: 20071001
  Transmission Date: 20090109
  Serious: No
  Sender: FDA-Public Use
  Company Number: US-AMGEN-KDL238180

PATIENT
  Sex: Female
  Weight: 98 kg

DRUGS (3)
  1. PROCRIT [Suspect]
     Indication: RENAL FAILURE CHRONIC
     Route: 058
     Dates: start: 20070803
  2. VANCOMYCIN HCL [Concomitant]
     Route: 042
     Dates: start: 20070731
  3. ZOSYN [Concomitant]
     Dates: start: 20070731

REACTIONS (2)
  - HAEMOGLOBIN DECREASED [None]
  - RETICULOCYTE COUNT DECREASED [None]
